FAERS Safety Report 20963384 (Version 1)
Quarter: 2022Q2

REPORT INFORMATION
  Report Type: Spontaneous
  Country: US (occurrence: US)
  Receive Date: 20220615
  Receipt Date: 20220615
  Transmission Date: 20220720
  Serious: No
  Sender: FDA-Public Use
  Company Number: US-PERRIGO-22US006798

PATIENT
  Age: 66 Year
  Sex: Female
  Weight: 53.515 kg

DRUGS (6)
  1. MICONAZOLE NITRATE [Suspect]
     Active Substance: MICONAZOLE NITRATE
     Indication: Vulvovaginal mycotic infection
     Dosage: 100 MG, NIGHTLY AT BEDTIME
     Route: 067
     Dates: start: 20220505
  2. SUMATRIPTAN [Concomitant]
     Active Substance: SUMATRIPTAN
     Indication: Migraine
     Dosage: UNK
     Route: 065
     Dates: start: 2015
  3. BENTYL [Concomitant]
     Active Substance: DICYCLOMINE HYDROCHLORIDE
     Indication: Irritable bowel syndrome
     Dosage: UNK
     Route: 065
     Dates: start: 2016
  4. FAMOTIDINE [Concomitant]
     Active Substance: FAMOTIDINE
     Indication: Gastrooesophageal reflux disease
     Dosage: UNK
     Route: 065
     Dates: start: 2020
  5. VAGIFEM [Concomitant]
     Active Substance: ESTRADIOL
     Indication: Atrophic vulvovaginitis
     Dosage: UNK
     Route: 065
     Dates: start: 2010
  6. ESTRADIOL [Concomitant]
     Active Substance: ESTRADIOL
     Indication: Supplementation therapy
     Dosage: UNK
     Route: 065
     Dates: start: 2019

REACTIONS (2)
  - Vaginal haemorrhage [Recovered/Resolved]
  - Vulvovaginal burning sensation [Not Recovered/Not Resolved]

NARRATIVE: CASE EVENT DATE: 20220506
